FAERS Safety Report 20679530 (Version 1)
Quarter: 2022Q2

REPORT INFORMATION
  Report Type: Spontaneous
  Country: IN (occurrence: IN)
  Receive Date: 20220406
  Receipt Date: 20220406
  Transmission Date: 20220721
  Serious: Yes (Death, Hospitalization)
  Sender: FDA-Public Use
  Company Number: IN-BoehringerIngelheim-2022-BI-163215

PATIENT
  Age: 39 Year
  Sex: Male
  Weight: 93 kg

DRUGS (4)
  1. PRAXBIND [Suspect]
     Active Substance: IDARUCIZUMAB
     Indication: Procoagulant therapy
  2. TAB Sompraz 40 [Concomitant]
     Indication: Product used for unknown indication
  3. TAB Ecosprin [Concomitant]
     Indication: Product used for unknown indication
  4. TAB Gabapin [Concomitant]
     Indication: Product used for unknown indication

REACTIONS (2)
  - Loss of consciousness [Fatal]
  - Haemorrhage [Fatal]

NARRATIVE: CASE EVENT DATE: 20220401
